FAERS Safety Report 10405667 (Version 1)
Quarter: 2014Q3

REPORT INFORMATION
  Report Type: Spontaneous
  Country: US (occurrence: None)
  Receive Date: 20140822
  Receipt Date: 20140822
  Transmission Date: 20150326
  Serious: No
  Sender: FDA-Public Use
  Company Number: None

PATIENT
  Age: 72 Year
  Sex: Male
  Weight: 102 kg

DRUGS (6)
  1. RITUXIMAB(MOAB C2B8 ANTI CD20, CHIMERIC) [Suspect]
     Active Substance: RITUXIMAB
  2. ETOPOSIDE (VP-16) [Suspect]
     Active Substance: ETOPOSIDE
  3. CYCLOPHOSPHAMIDE. [Suspect]
     Active Substance: CYCLOPHOSPHAMIDE
  4. DOXORUBICIN HYDROCHLORIDE. [Concomitant]
     Active Substance: DOXORUBICIN HYDROCHLORIDE
  5. METHOTREXATE [Suspect]
     Active Substance: METHOTREXATE
  6. VINCRISTINE SULFATE. [Suspect]
     Active Substance: VINCRISTINE SULFATE

REACTIONS (4)
  - Systemic inflammatory response syndrome [None]
  - Colitis [None]
  - Sepsis [None]
  - Neutropenic colitis [None]

NARRATIVE: CASE EVENT DATE: 20140810
